FAERS Safety Report 4657814-2 (Version None)
Quarter: 2005Q2

REPORT INFORMATION
  Report Type: 
  Country: None (occurrence: None)
  Receive Date: 20050428
  Receipt Date: 20050407
  Transmission Date: 20051028
  Serious: Yes (Hospitalization)
  Sender: FDA-Public Use
  Company Number: ZICO001185

PATIENT
  Age: 60 Year
  Sex: Female
  Weight: 67.5 kg

DRUGS (10)
  1. PRIALT [Suspect]
     Indication: PAIN
     Dosage: 0.05 MCG/HR INTRATHECAL
     Route: 037
     Dates: start: 20041027, end: 20041116
  2. OMEPRAZOLE [Concomitant]
  3. PAROXETINE HCL [Concomitant]
  4. AZATHIOPRINE [Concomitant]
  5. PREDNISONE [Concomitant]
  6. LORAZEPAM [Concomitant]
  7. RISEDRONATE SODIUM (RISEDRONATE SODIUM) [Concomitant]
  8. TRIAZOLAM [Concomitant]
  9. LAMOTRIGINE [Concomitant]
  10. CIPROFLOXACIN LACTATE (CIPROFLOXACIN LACTATE) [Concomitant]

REACTIONS (1)
  - ASTHENIA [None]
